FAERS Safety Report 13624725 (Version 1)
Quarter: 2017Q2

REPORT INFORMATION
  Report Type: Report from Study
  Country: US (occurrence: US)
  Receive Date: 20170607
  Receipt Date: 20170607
  Transmission Date: 20170830
  Serious: Yes (Other)
  Sender: FDA-Public Use
  Company Number: US-ASTELLAS-2015US021375

PATIENT
  Sex: Male

DRUGS (3)
  1. ERLOTINIB [Suspect]
     Active Substance: ERLOTINIB
     Indication: NEUROENDOCRINE CARCINOMA OF THE SKIN
     Dosage: UNK UNK, UNKNOWN FREQ.
     Route: 065
     Dates: start: 200601
  2. VP-16 [Concomitant]
     Active Substance: ETOPOSIDE
     Indication: PRODUCT USED FOR UNKNOWN INDICATION
     Dosage: UNK UNK, UNKNOWN FREQ.
     Route: 065
     Dates: start: 200405, end: 200612
  3. CARBOPLATIN. [Concomitant]
     Active Substance: CARBOPLATIN
     Indication: PRODUCT USED FOR UNKNOWN INDICATION
     Dosage: UNK UNK, UNKNOWN FREQ.
     Route: 065
     Dates: start: 200405, end: 200612

REACTIONS (9)
  - Off label use [Unknown]
  - Nausea [Unknown]
  - Chest discomfort [Unknown]
  - Malignant neoplasm progression [Unknown]
  - Constipation [Unknown]
  - Platelet count decreased [Unknown]
  - Pancytopenia [Unknown]
  - Neutropenia [Unknown]
  - Pain in extremity [Unknown]
